FAERS Safety Report 7086383-5 (Version None)
Quarter: 2010Q4

REPORT INFORMATION
  Report Type: 
  Country: None (occurrence: None)
  Receive Date: 20101105
  Receipt Date: 20101028
  Transmission Date: 20110411
  Serious: Yes (Hospitalization)
  Sender: FDA-Public Use
  Company Number: US-CEPHALON-2010005374

PATIENT
  Sex: Female
  Weight: 76 kg

DRUGS (18)
  1. NUVIGIL [Suspect]
     Indication: NARCOLEPSY
     Route: 048
     Dates: start: 20100731
  2. ACETAMINOPHEN [Suspect]
  3. ANTIBIOTIC [Concomitant]
  4. AVELOX [Concomitant]
     Dates: start: 20100101
  5. CYMBALTA [Concomitant]
  6. LYRICA [Concomitant]
  7. POTASSIUM CHLORIDE [Concomitant]
  8. LASIX [Concomitant]
  9. NICOTINE TRANSDERMAL FILM [Concomitant]
  10. TOPAMAX [Concomitant]
  11. JUNEL 1.5/30 [Concomitant]
  12. PERCOCET [Concomitant]
  13. OMEPRAZOLE [Concomitant]
  14. DIAZEPAM [Concomitant]
  15. MULTI-VITAMINS [Concomitant]
  16. LIOTHYRONINE SODIUM [Concomitant]
  17. LEVOTHROID [Concomitant]
  18. LUNESTA [Concomitant]

REACTIONS (4)
  - ANALGESIC DRUG LEVEL INCREASED [None]
  - ANAPHYLACTIC REACTION [None]
  - MULTI-ORGAN FAILURE [None]
  - PANCYTOPENIA [None]
